FAERS Safety Report 5995831-0 (Version None)
Quarter: 2008Q4

REPORT INFORMATION
  Report Type: 
  Country: None (occurrence: None)
  Receive Date: 20081212
  Receipt Date: 20081201
  Transmission Date: 20090506
  Serious: Yes (Disabling)
  Sender: FDA-Public Use
  Company Number: NZ-PFIZER INC-2008086942

PATIENT

DRUGS (3)
  1. ZELDOX [Suspect]
     Indication: SCHIZOPHRENIA
     Dosage: UNK
     Route: 048
     Dates: start: 20080927
  2. ZELDOX [Suspect]
     Indication: SUSPICIOUSNESS
  3. ZOPICLONE [Concomitant]
     Indication: INSOMNIA
     Dosage: 7.5 MG, 1X/DAY
     Route: 048

REACTIONS (8)
  - AKATHISIA [None]
  - ANXIETY [None]
  - DISCOMFORT [None]
  - FEELING HOT [None]
  - PANIC REACTION [None]
  - RESTLESSNESS [None]
  - SEDATION [None]
  - SOMNOLENCE [None]
